FAERS Safety Report 17242976 (Version 1)
Quarter: 2020Q1

REPORT INFORMATION
  Report Type: Spontaneous
  Country: PT (occurrence: PT)
  Receive Date: 20200107
  Receipt Date: 20200107
  Transmission Date: 20200409
  Serious: Yes (Other)
  Sender: FDA-Public Use
  Company Number: PT-SAMSUNG BIOEPIS-SB-2019-40161

PATIENT
  Age: 19 Year
  Sex: Female

DRUGS (3)
  1. SALAZOPYRINE [Suspect]
     Active Substance: SULFASALAZINE
     Indication: PRODUCT USED FOR UNKNOWN INDICATION
     Dosage: (GREATER THAN 1G/DAY)
     Route: 065
  2. ETANERCEPT [Suspect]
     Active Substance: ETANERCEPT
     Indication: PSORIATIC ARTHROPATHY
     Dosage: UNKNOWN
     Route: 065
  3. SALAZOPYRINE [Suspect]
     Active Substance: SULFASALAZINE
     Indication: PRODUCT USED FOR UNKNOWN INDICATION
     Dosage: UNKNOWN, (GREATER THAN 1G/DAY)
     Route: 065

REACTIONS (6)
  - Tenosynovitis [Unknown]
  - Cell death [Unknown]
  - Leukopenia [Unknown]
  - Treatment failure [Unknown]
  - Condition aggravated [Unknown]
  - Polyarthritis [Unknown]
